FAERS Safety Report 9012988 (Version 2)
Quarter: 2013Q1

REPORT INFORMATION
  Report Type: Spontaneous
  Country: CA (occurrence: CA)
  Receive Date: 20130115
  Receipt Date: 20130125
  Transmission Date: 20140127
  Serious: Yes (Hospitalization, Other)
  Sender: FDA-Public Use
  Company Number: CA-AMGEN-CANSP2013000629

PATIENT
  Age: 66 Year
  Sex: Female
  Weight: 72 kg

DRUGS (18)
  1. SENSIPAR [Suspect]
     Indication: NEPHROPATHY
     Dosage: 60 MG, QD
     Dates: start: 20110413
  2. SENSIPAR [Suspect]
     Indication: HYPERPARATHYROIDISM
  3. ANTIHYPERTENSIVES [Concomitant]
  4. TIAZAC                             /00489702/ [Concomitant]
     Dosage: 180 MG, QD
     Dates: start: 20120808
  5. LABETALOL [Concomitant]
     Dosage: 200 MG, BID
     Dates: start: 20120808
  6. GLICLAZIDE [Concomitant]
     Dosage: 60 MG, BID
     Dates: start: 20120808
  7. FERROUS FUMARATE [Concomitant]
     Dosage: 900 MG, UNK
     Dates: start: 20120808
  8. REPLAVITE                          /00058902/ [Concomitant]
     Dosage: UNK UNK, QD
     Dates: start: 20120808
  9. CALCIUM CARBONATE PCH [Concomitant]
     Dosage: UNK
     Dates: start: 20120808
  10. COLACE-T [Concomitant]
     Dosage: UNK UNK, BID
     Dates: start: 20120808
  11. LACTULOSE [Concomitant]
     Dosage: 30 UNK, PRN
     Route: 048
     Dates: start: 20120808
  12. ARANESP [Concomitant]
     Dosage: 50 MUG, Q2WK
     Route: 058
     Dates: start: 20120808
  13. COVERSYL                           /00790702/ [Concomitant]
     Dosage: 4 MG, QD
     Route: 048
     Dates: start: 20120808
  14. DOMPERIDONE [Concomitant]
     Dosage: 10 MG, QID
     Dates: start: 20120808
  15. PANTOPRAZOLE [Concomitant]
     Dosage: 40 MG, QD
     Dates: start: 20120808
  16. LIPITOR [Concomitant]
     Dosage: 10 MG, QD
     Route: 048
     Dates: start: 20120808
  17. SYNTHROID [Concomitant]
     Dosage: 0.1 MG, QD
     Route: 048
     Dates: start: 20120808
  18. ROCALTROL [Concomitant]
     Dosage: 0.25 MUG, QD
     Dates: start: 20120808

REACTIONS (10)
  - Pneumothorax [Recovered/Resolved]
  - Dyspnoea [Recovered/Resolved]
  - Pneumoperitoneum [Recovered/Resolved]
  - Hiccups [Recovered/Resolved]
  - Abdominal pain [Unknown]
  - Weight decreased [Recovered/Resolved]
  - Muscular weakness [Recovered/Resolved]
  - Fall [Recovered/Resolved]
  - Vomiting [Recovered/Resolved]
  - Decreased appetite [Unknown]
